FAERS Safety Report 21536193 (Version 2)
Quarter: 2022Q4

REPORT INFORMATION
  Report Type: Spontaneous
  Country: IT (occurrence: IT)
  Receive Date: 20221101
  Receipt Date: 20221117
  Transmission Date: 20230113
  Serious: Yes (Hospitalization)
  Sender: FDA-Public Use
  Company Number: None

PATIENT
  Sex: Female

DRUGS (8)
  1. MESALAMINE [Suspect]
     Active Substance: MESALAMINE
     Indication: Product used for unknown indication
     Dosage: 9600 MG
     Dates: start: 20220118, end: 20220118
  2. CINNARIZINE\DIMENHYDRINATE [Suspect]
     Active Substance: CINNARIZINE\DIMENHYDRINATE
     Indication: Product used for unknown indication
     Dosage: 800 MG
     Dates: start: 20220118, end: 20220118
  3. ACETAMINOPHEN\CHLORPHENIRAMINE MALEATE [Suspect]
     Active Substance: ACETAMINOPHEN\CHLORPHENIRAMINE MALEATE
     Indication: Product used for unknown indication
     Dosage: 10 DF
     Dates: start: 20220118, end: 20220118
  4. AMLODIPINE [Suspect]
     Active Substance: AMLODIPINE BESYLATE
     Indication: Product used for unknown indication
     Dosage: 70 MG
     Dates: start: 20220118, end: 20220118
  5. BACTRIM [Suspect]
     Active Substance: SULFAMETHOXAZOLE\TRIMETHOPRIM
     Indication: Product used for unknown indication
     Dosage: 640 MG
     Dates: start: 20220118, end: 20220118
  6. AMOXICILLIN\CLAVULANATE POTASSIUM [Suspect]
     Active Substance: AMOXICILLIN\CLAVULANATE POTASSIUM
     Indication: Product used for unknown indication
     Dosage: 6000 MG
     Dates: start: 20220118, end: 20220118
  7. METFORMIN HYDROCHLORIDE [Suspect]
     Active Substance: METFORMIN HYDROCHLORIDE
     Indication: Product used for unknown indication
     Dosage: 10000 MG
     Dates: start: 20220118, end: 20220118
  8. BIOFLAVONOIDS\DIOSMIN\HESPERIDIN [Suspect]
     Active Substance: BIOFLAVONOIDS\DIOSMIN\HESPERIDIN
     Indication: Product used for unknown indication
     Dosage: 7500 MG

REACTIONS (4)
  - Suicide attempt [Recovered/Resolved]
  - Tachycardia [Not Recovered/Not Resolved]
  - Hypoglycaemia [Not Recovered/Not Resolved]
  - Drug abuse [Recovered/Resolved]

NARRATIVE: CASE EVENT DATE: 20220118
